FAERS Safety Report 7426519-7 (Version None)
Quarter: 2011Q2

REPORT INFORMATION
  Report Type: 
  Country: None (occurrence: None)
  Receive Date: 20110420
  Receipt Date: 20110412
  Transmission Date: 20111010
  Serious: Yes (Death)
  Sender: FDA-Public Use
  Company Number: US-ACTELION-A-NJ2010-34749

PATIENT

DRUGS (3)
  1. REVATIO [Concomitant]
  2. VENTAVIS [Suspect]
     Indication: PULMONARY ARTERIAL HYPERTENSION
     Dosage: UNK
     Route: 055
     Dates: start: 20061106
  3. VENTAVIS [Suspect]
     Dosage: UNK
     Route: 055

REACTIONS (3)
  - DYSPNOEA [None]
  - ASTHENIA [None]
  - DEATH [None]
